FAERS Safety Report 8399616-X (Version None)
Quarter: 2012Q2

REPORT INFORMATION
  Report Type: 
  Country: None (occurrence: None)
  Receive Date: 20120531
  Receipt Date: 20120516
  Transmission Date: 20120825
  Serious: Yes (Other)
  Sender: FDA-Public Use
  Company Number: US-ENDO PHARMACEUTICALS INC.-OPER20120643

PATIENT
  Sex: Male

DRUGS (2)
  1. OPANA ER [Suspect]
     Indication: BACK PAIN
     Route: 048
     Dates: start: 20120101
  2. OPANA [Concomitant]
     Indication: BREAKTHROUGH PAIN
     Route: 048
     Dates: start: 20120101

REACTIONS (8)
  - MALAISE [None]
  - TINNITUS [None]
  - DRUG DISPENSING ERROR [None]
  - FEELING ABNORMAL [None]
  - CONFUSIONAL STATE [None]
  - NEUROPATHY PERIPHERAL [None]
  - POOR PERIPHERAL CIRCULATION [None]
  - DRUG EFFECT DECREASED [None]
